FAERS Safety Report 7365218-7 (Version None)
Quarter: 2011Q1

REPORT INFORMATION
  Report Type: 
  Country: None (occurrence: None)
  Receive Date: 20110321
  Receipt Date: 20110318
  Transmission Date: 20110831
  Serious: Yes (Hospitalization, Other)
  Sender: FDA-Public Use
  Company Number: GB-BRISTOL-MYERS SQUIBB COMPANY-15605751

PATIENT
  Age: 25 Year
  Sex: Female

DRUGS (2)
  1. ARIPIPRAZOLE [Suspect]
  2. METFORMIN HCL [Suspect]
     Indication: TYPE 2 DIABETES MELLITUS

REACTIONS (3)
  - OVERDOSE [None]
  - DIABETIC KETOACIDOSIS [None]
  - RESPIRATORY FAILURE [None]
